FAERS Safety Report 4318246-X (Version None)
Quarter: 2004Q1

REPORT INFORMATION
  Report Type: 
  Country: None (occurrence: None)
  Receive Date: 20040317
  Receipt Date: 20020815
  Transmission Date: 20041129
  Serious: Yes (Death, Other)
  Sender: FDA-Public Use
  Company Number: US-BRISTOL-MYERS SQUIBB COMPANY-12001640

PATIENT
  Age: 61 Year
  Sex: Male

DRUGS (2)
  1. CISPLATIN [Suspect]
     Indication: SMALL CELL LUNG CANCER STAGE UNSPECIFIED
     Dosage: INITIAL DOSE ON 17-JAN-02
     Route: 042
     Dates: start: 20020425, end: 20020425
  2. ETOPOSIDE [Suspect]
     Indication: SMALL CELL LUNG CANCER STAGE UNSPECIFIED
     Dosage: INITIAL COURSE FROM 17-JAN-02 TO 19-JAN-02
     Route: 042
     Dates: start: 20020425, end: 20020427

REACTIONS (5)
  - CARDIOPULMONARY FAILURE [None]
  - DEATH [None]
  - DEHYDRATION [None]
  - ELECTROLYTE IMBALANCE [None]
  - MICROANGIOPATHY [None]
